FAERS Safety Report 9036792 (Version 1)
Quarter: 2013Q1

REPORT INFORMATION
  Report Type: Spontaneous
  Country: US (occurrence: None)
  Receive Date: 20130118
  Receipt Date: 20130118
  Transmission Date: 20140127
  Serious: No
  Sender: FDA-Public Use
  Company Number: None

PATIENT
  Age: 53 Year
  Sex: Male
  Weight: 64.6 kg

DRUGS (18)
  1. FENTANYL [Suspect]
     Indication: TONSILLECTOMY
     Route: 042
     Dates: start: 20121214, end: 20121214
  2. HYDROXYTRYPTOPHAN [Concomitant]
  3. ARGININE [Concomitant]
  4. ASPIRIN [Concomitant]
  5. ASTAXANTHIN [Concomitant]
  6. GLYBURIDE [Concomitant]
  7. LYSINE [Concomitant]
  8. MELATONIN [Concomitant]
  9. MILK THISTLE [Concomitant]
  10. MULTIVITAMIN [Concomitant]
  11. OMEGA -3 FATTY ACIDS- FISH OIL [Concomitant]
  12. OMEPRAZOLE [Concomitant]
  13. PRASTERONE [Concomitant]
  14. PSYLLIUM SEED WITH DEXTROSE [Concomitant]
  15. FIBER [Concomitant]
  16. RED YEAST RICE [Concomitant]
  17. SERTRALINE [Concomitant]
  18. VITAMIN B COMPLEX/FOLIC ACID [Concomitant]

REACTIONS (1)
  - Delayed recovery from anaesthesia [None]
